FAERS Safety Report 5779689-0 (Version None)
Quarter: 2008Q2

REPORT INFORMATION
  Report Type: 
  Country: None (occurrence: None)
  Receive Date: 20080619
  Receipt Date: 20080610
  Transmission Date: 20081010
  Serious: Yes (Life-Threatening)
  Sender: FDA-Public Use
  Company Number: JP-MERCK-0805USA06322

PATIENT
  Age: 78 Year
  Sex: Male
  Weight: 41 kg

DRUGS (8)
  1. STROMECTOL [Suspect]
     Indication: ACARODERMATITIS
     Route: 048
     Dates: start: 20080522, end: 20080522
  2. MAGMITT [Concomitant]
     Route: 048
     Dates: start: 20080205, end: 20080521
  3. LUVOX [Concomitant]
     Indication: DEMENTIA
     Route: 048
     Dates: start: 20080105, end: 20080526
  4. PROTECADIN [Concomitant]
     Indication: PROPHYLAXIS AGAINST GASTROINTESTINAL ULCER
     Route: 048
     Dates: start: 20080222, end: 20080526
  5. HOKUNALIN [Concomitant]
     Route: 061
     Dates: start: 20080422, end: 20080527
  6. CEFTERAM PIVOXIL [Concomitant]
     Indication: PYREXIA
     Route: 048
     Dates: start: 20080515, end: 20080518
  7. TIAPRIDE HYDROCHLORIDE [Concomitant]
     Indication: DEMENTIA
     Route: 048
     Dates: start: 20080501, end: 20080526
  8. GENINAX [Concomitant]
     Indication: PNEUMONIA
     Route: 048
     Dates: start: 20080507, end: 20080510

REACTIONS (2)
  - DIARRHOEA [None]
  - HAEMATOCHEZIA [None]
